FAERS Safety Report 4558175-X (Version None)
Quarter: 2005Q1

REPORT INFORMATION
  Report Type: 
  Country: None (occurrence: None)
  Receive Date: 20050103
  Receipt Date: 20041028
  Transmission Date: 20050727
  Serious: Yes (Other)
  Sender: FDA-Public Use
  Company Number: 2004UW22375

PATIENT
  Age: 50 Year
  Sex: Female
  Weight: 71.667 kg

DRUGS (2)
  1. CRESTOR [Suspect]
     Indication: BLOOD CHOLESTEROL INCREASED
     Dosage: 10 MG PO
     Route: 048
  2. ACTOS /CAN/ [Suspect]

REACTIONS (1)
  - BLOOD ALBUMIN DECREASED [None]
